FAERS Safety Report 6335551-6 (Version None)
Quarter: 2009Q3

REPORT INFORMATION
  Report Type: 
  Country: None (occurrence: None)
  Receive Date: 20090831
  Receipt Date: 20090821
  Transmission Date: 20100115
  Serious: Yes (Hospitalization)
  Sender: FDA-Public Use
  Company Number: IE-ABBOTT-08P-229-0450084-00

PATIENT
  Sex: Female

DRUGS (3)
  1. HUMIRA [Suspect]
     Indication: CROHN'S DISEASE
     Route: 058
     Dates: start: 20080402, end: 20080416
  2. MAXIFLOXIN [Concomitant]
     Indication: PRODUCTIVE COUGH
     Dates: start: 20080423, end: 20080428
  3. AUGMENTIN [Concomitant]
     Indication: COUGH
     Dosage: 1-2 G
     Dates: start: 20080430, end: 20080430

REACTIONS (3)
  - ABDOMINAL PAIN [None]
  - CROHN'S DISEASE [None]
  - DIARRHOEA [None]
